FAERS Safety Report 9604091 (Version 2)
Quarter: 2013Q4

REPORT INFORMATION
  Report Type: Spontaneous
  Country: IT (occurrence: IT)
  Receive Date: 20131008
  Receipt Date: 20131016
  Transmission Date: 20140711
  Serious: Yes (Hospitalization)
  Sender: FDA-Public Use
  Company Number: IT-009507513-1310ITA002198

PATIENT
  Age: 51 Year
  Sex: Male

DRUGS (1)
  1. CLARITYN [Suspect]
     Indication: ASTHMA
     Dosage: 1 POSOLOGICAL UNIT, QD
     Route: 048
     Dates: start: 20130709, end: 20130709

REACTIONS (1)
  - Syncope [Unknown]
